FAERS Safety Report 5782779-X (Version None)
Quarter: 2008Q2

REPORT INFORMATION
  Report Type: 
  Country: None (occurrence: None)
  Receive Date: 20080624
  Receipt Date: 20080331
  Transmission Date: 20081010
  Serious: No
  Sender: FDA-Public Use
  Company Number: US-BAYER-200818548NA

PATIENT
  Age: 40 Year
  Sex: Female
  Weight: 82 kg

DRUGS (6)
  1. CLIMARA [Suspect]
     Indication: HORMONE REPLACEMENT THERAPY
     Route: 062
  2. PREDNISONE TAB [Concomitant]
  3. METHOTREXATE [Concomitant]
  4. NEXIUM [Concomitant]
  5. VOPARIN NOS [Concomitant]
  6. ORENTHIA NOS [Concomitant]

REACTIONS (2)
  - APPLICATION SITE ERYTHEMA [None]
  - APPLICATION SITE EXCORIATION [None]
